FAERS Safety Report 24201331 (Version 1)
Quarter: 2024Q3

REPORT INFORMATION
  Report Type: Spontaneous
  Country: US (occurrence: None)
  Receive Date: 20240811
  Receipt Date: 20240811
  Transmission Date: 20241016
  Serious: No
  Sender: Public
  Company Number: None

PATIENT
  Age: 63 Year
  Sex: Male
  Weight: 108 kg

DRUGS (2)
  1. REPATHA [Suspect]
     Active Substance: EVOLOCUMAB
     Indication: Blood cholesterol increased
     Dosage: OTHER FREQUENCY : 2X MONTH;?
     Route: 058
     Dates: start: 20240809
  2. DEVICE [Concomitant]
     Active Substance: DEVICE

REACTIONS (2)
  - Oropharyngeal pain [None]
  - Influenza like illness [None]

NARRATIVE: CASE EVENT DATE: 20240810
